FAERS Safety Report 7343391-4 (Version None)
Quarter: 2011Q1

REPORT INFORMATION
  Report Type: 
  Country: None (occurrence: None)
  Receive Date: 20110308
  Receipt Date: 20110308
  Transmission Date: 20110831
  Serious: Yes (Life-Threatening, Hospitalization, Disabling, Other)
  Sender: FDA-Public Use
  Company Number: None

PATIENT
  Age: 40 Year
  Sex: Male
  Weight: 81.6475 kg

DRUGS (1)
  1. ACCUTANE [Suspect]
     Indication: ACNE
     Dosage: 2 PER DAY
     Dates: start: 19850101, end: 19850626

REACTIONS (10)
  - VASCULAR OCCLUSION [None]
  - BURNING SENSATION [None]
  - CARDIAC DISORDER [None]
  - SUICIDAL IDEATION [None]
  - MIGRAINE [None]
  - PAIN [None]
  - GASTRIC DISORDER [None]
  - INTENTIONAL SELF-INJURY [None]
  - JOINT INJURY [None]
  - FEELING ABNORMAL [None]
